FAERS Safety Report 20391416 (Version 1)
Quarter: 2022Q1

REPORT INFORMATION
  Report Type: Spontaneous
  Country: FR (occurrence: FR)
  Receive Date: 20220128
  Receipt Date: 20220128
  Transmission Date: 20220424
  Serious: Yes (Life-Threatening, Hospitalization)
  Sender: FDA-Public Use
  Company Number: None

PATIENT
  Age: 27 Year
  Sex: Female

DRUGS (3)
  1. TRAMADOL HYDROCHLORIDE [Suspect]
     Active Substance: TRAMADOL HYDROCHLORIDE
     Indication: Gastroenteritis
     Dosage: UNK
     Route: 048
     Dates: start: 20211004, end: 20211020
  2. ACETAMINOPHEN [Suspect]
     Active Substance: ACETAMINOPHEN
     Indication: Gastroenteritis
     Dosage: 4 G
     Route: 048
     Dates: start: 20211004, end: 20211020
  3. ACETAMINOPHEN\OPIUM [Suspect]
     Active Substance: ACETAMINOPHEN\OPIUM
     Indication: Gastroenteritis
     Dosage: 1 DOSAGE FORM
     Route: 048
     Dates: start: 20211004, end: 20211020

REACTIONS (2)
  - Hepatitis acute [Recovered/Resolved]
  - Acute kidney injury [Recovered/Resolved]

NARRATIVE: CASE EVENT DATE: 20211021
